FAERS Safety Report 13836067 (Version 1)
Quarter: 2017Q3

REPORT INFORMATION
  Report Type: Spontaneous
  Country: US (occurrence: US)
  Receive Date: 20170804
  Receipt Date: 20170804
  Transmission Date: 20171127
  Serious: No
  Sender: FDA-Public Use
  Company Number: US-PERRIGO-17US023709

PATIENT
  Age: 61 Year
  Sex: Male
  Weight: 113.38 kg

DRUGS (3)
  1. MOTRIN IB [Suspect]
     Active Substance: IBUPROFEN
     Indication: BACK PAIN
     Dosage: 400 MG TO 600 MG, QD
     Route: 048
     Dates: start: 201704, end: 20170511
  2. ALBUTEROL                          /00139501/ [Concomitant]
     Active Substance: ALBUTEROL
     Indication: DYSPNOEA
     Route: 055
  3. NAPROXEN. [Concomitant]
     Active Substance: NAPROXEN
     Indication: BACK PAIN
     Dosage: UNK
     Route: 048

REACTIONS (5)
  - Dyspnoea [Unknown]
  - Haematochezia [Unknown]
  - Saliva altered [Unknown]
  - Apnoea [Unknown]
  - Incorrect dose administered [Recovered/Resolved]

NARRATIVE: CASE EVENT DATE: 201704
